FAERS Safety Report 4307416-2 (Version None)
Quarter: 2004Q1

REPORT INFORMATION
  Report Type: 
  Country: None (occurrence: None)
  Receive Date: 20040226
  Receipt Date: 20040223
  Transmission Date: 20041129
  Serious: No
  Sender: FDA-Public Use
  Company Number: 2003CG01707

PATIENT
  Age: 56 Year
  Sex: Female

DRUGS (11)
  1. IRESSA [Suspect]
     Indication: LUNG ADENOCARCINOMA
     Dosage: 250 MG DAILY PO
     Route: 048
     Dates: start: 20030624, end: 20030805
  2. IRESSA [Suspect]
     Indication: LUNG ADENOCARCINOMA
     Dosage: 250 MG DAILY PO
     Route: 048
     Dates: start: 20030826, end: 20030930
  3. IRESSA [Suspect]
     Indication: LUNG ADENOCARCINOMA
     Dosage: 250 MG DAILY PO
     Route: 048
     Dates: start: 20031013, end: 20031118
  4. IRESSA [Suspect]
     Indication: LUNG ADENOCARCINOMA
     Dosage: 250 MG DAILY PO
     Route: 048
     Dates: start: 20031124, end: 20031218
  5. IRESSA [Suspect]
     Indication: LUNG ADENOCARCINOMA
     Dosage: 250 MG DAILY PO
     Route: 048
     Dates: start: 20040110
  6. CISPLATIN [Concomitant]
  7. NAVELBINE [Concomitant]
  8. RADIOTHERAPY [Concomitant]
  9. FLUOROURACIL [Concomitant]
  10. GEMZAR [Concomitant]
  11. TAXOTERE [Concomitant]

REACTIONS (9)
  - ACNE [None]
  - DIARRHOEA [None]
  - DYSPNOEA EXERTIONAL [None]
  - ERYTHEMA [None]
  - FACE OEDEMA [None]
  - PRODUCTIVE COUGH [None]
  - PYREXIA [None]
  - SKIN INFECTION [None]
  - VOMITING [None]
